FAERS Safety Report 5674179-8 (Version None)
Quarter: 2008Q1

REPORT INFORMATION
  Report Type: 
  Country: None (occurrence: None)
  Receive Date: 20080320
  Receipt Date: 20080312
  Transmission Date: 20080703
  Serious: Yes (Other)
  Sender: FDA-Public Use
  Company Number: PHBS2008AT03216

PATIENT
  Sex: Male

DRUGS (1)
  1. SEBIVO [Suspect]
     Indication: HEPATIC CIRRHOSIS
     Dosage: EVERY 4TH DAY FOR 3 WEEKS

REACTIONS (1)
  - DISTURBANCE IN ATTENTION [None]
